FAERS Safety Report 24642572 (Version 2)
Quarter: 2024Q4

REPORT INFORMATION
  Report Type: Spontaneous
  Country: US (occurrence: US)
  Receive Date: 20241120
  Receipt Date: 20241211
  Transmission Date: 20250114
  Serious: No
  Sender: MERCK
  Company Number: US-009507513-2410USA011823

PATIENT
  Sex: Female
  Weight: 73.9 kg

DRUGS (11)
  1. WINREVAIR [Suspect]
     Active Substance: SOTATERCEPT-CSRK
     Indication: Product used for unknown indication
     Dosage: UNK
     Dates: start: 2024
  2. ORENITRAM [Suspect]
     Active Substance: TREPROSTINIL
     Indication: Pulmonary arterial hypertension
     Dosage: 1.5 MILLIGRAM (1 TABLET OF 1 MG AND 2 TABLETS OF 0.25 MG),,  THREE TIMES A DAY (TID)
     Route: 048
     Dates: start: 20231218
  3. CARVEDILOL [Concomitant]
     Active Substance: CARVEDILOL
  4. IMODIUM [Concomitant]
     Active Substance: LOPERAMIDE HYDROCHLORIDE
  5. TYLENOL EXTRA STRENGTH [Concomitant]
     Active Substance: ACETAMINOPHEN
  6. TADALAFIL [Concomitant]
     Active Substance: TADALAFIL
  7. OXYGEN [Concomitant]
     Active Substance: OXYGEN
  8. FUROSEMIDE [Concomitant]
     Active Substance: FUROSEMIDE
  9. AMBRISENTAN [Concomitant]
     Active Substance: AMBRISENTAN
  10. ENTRESTO [Concomitant]
     Active Substance: SACUBITRIL\VALSARTAN
  11. ONDANSETRON HYDROCHLORIDE [Concomitant]
     Active Substance: ONDANSETRON HYDROCHLORIDE

REACTIONS (4)
  - Nausea [Unknown]
  - Injection site bruising [Unknown]
  - Muscle spasms [Unknown]
  - Arthralgia [Unknown]

NARRATIVE: CASE EVENT DATE: 20240101
